FAERS Safety Report 9295115 (Version 1)
Quarter: 2013Q1

REPORT INFORMATION
  Report Type: Spontaneous
  Country: US (occurrence: None)
  Receive Date: 20121227
  Receipt Date: 20121227
  Transmission Date: 20140127
  Serious: Yes (Hospitalization, Other)
  Sender: FDA-Public Use
  Company Number: PHEH2011US009406

PATIENT
  Age: 33 Year
  Sex: Male
  Weight: 107 kg

DRUGS (6)
  1. EXJADE (*CGP 72670*) UNKNOWN [Suspect]
     Indication: SICKLE CELL ANAEMIA
     Route: 048
     Dates: start: 20111006
  2. OXYCONTIN (OXYCODONE HYDROCHLORIDE) [Concomitant]
  3. ENALAPRIL MALEATE (ENALAPRIL MALEATE) [Concomitant]
  4. FOLIC ACID (FOLIC ACID) [Concomitant]
  5. METHYLPHENIDATE (METHYLPHENIDATE) [Concomitant]
  6. METHADONE (METHADONE) [Concomitant]

REACTIONS (2)
  - Haemoglobin decreased [None]
  - Sickle cell anaemia with crisis [None]
